FAERS Safety Report 17524806 (Version 1)
Quarter: 2020Q1

REPORT INFORMATION
  Report Type: Spontaneous
  Country: US (occurrence: US)
  Receive Date: 20200303
  Receipt Date: 20200303
  Transmission Date: 20200409
  Serious: Yes (Hospitalization)
  Sender: FDA-Public Use
  Company Number: None

PATIENT
  Age: 69 Year
  Sex: Male

DRUGS (1)
  1. CEFEPIME (CEFEPIME HCL2GM/VIL INJ) [Suspect]
     Active Substance: CEFEPIME HYDROCHLORIDE
     Indication: OSTEOMYELITIS
     Dates: start: 20191030, end: 20191105

REACTIONS (1)
  - Seizure [None]

NARRATIVE: CASE EVENT DATE: 20191105
